FAERS Safety Report 13124913 (Version 1)
Quarter: 2017Q1

REPORT INFORMATION
  Report Type: Spontaneous
  Country: US (occurrence: US)
  Receive Date: 20170118
  Receipt Date: 20170118
  Transmission Date: 20170428
  Serious: No
  Sender: FDA-Public Use
  Company Number: US-SERB S.A.S.-1062102

PATIENT
  Age: 63 Year
  Sex: Female
  Weight: 75 kg

DRUGS (3)
  1. CYANOKIT [Suspect]
     Active Substance: HYDROXOCOBALAMIN
     Route: 042
  2. CYANOKIT [Suspect]
     Active Substance: HYDROXOCOBALAMIN
     Indication: VASOPLEGIA SYNDROME
     Route: 040
  3. CYANOKIT [Suspect]
     Active Substance: HYDROXOCOBALAMIN
     Route: 042

REACTIONS (1)
  - Therapeutic response unexpected [Recovered/Resolved]
